FAERS Safety Report 5477983-4 (Version None)
Quarter: 2007Q4

REPORT INFORMATION
  Report Type: 
  Country: None (occurrence: None)
  Receive Date: 20071005
  Receipt Date: 20070926
  Transmission Date: 20080405
  Serious: Yes (Life-Threatening, Hospitalization)
  Sender: FDA-Public Use
  Company Number: FR-TYCO HEALTHCARE/MALLINCKRODT-T200700161

PATIENT

DRUGS (3)
  1. HEXABRIX [Suspect]
     Indication: ANGIOGRAM
     Dosage: 25 ML, TOTAL
     Route: 013
     Dates: start: 20070125, end: 20070125
  2. XYLOCAINE                          /00033401/ [Concomitant]
     Indication: LOCAL ANAESTHESIA
     Dates: start: 20070125, end: 20070125
  3. NITROGLYCERIN [Concomitant]
     Dates: start: 20070125, end: 20070125

REACTIONS (9)
  - ARTERIOSPASM CORONARY [None]
  - BRADYCARDIA [None]
  - ERYTHEMA [None]
  - HYPOAESTHESIA [None]
  - NAUSEA [None]
  - PRURITUS [None]
  - RASH [None]
  - SHOCK [None]
  - VOMITING [None]
